FAERS Safety Report 24675072 (Version 2)
Quarter: 2025Q1

REPORT INFORMATION
  Report Type: Spontaneous
  Country: US (occurrence: US)
  Receive Date: 20241128
  Receipt Date: 20250203
  Transmission Date: 20250408
  Serious: No
  Sender: AMGEN
  Company Number: US-PFIZER INC-202400307333

PATIENT
  Sex: Female

DRUGS (1)
  1. ENBREL [Suspect]
     Active Substance: ETANERCEPT
     Indication: Rheumatoid arthritis
     Dosage: 50 MG, WEEKLY (50 MG/ML, INJECT 1 ML, ONCE WEEKLY)
     Route: 058

REACTIONS (2)
  - Feeling cold [Unknown]
  - Intentional dose omission [Unknown]
